FAERS Safety Report 18275890 (Version 1)
Quarter: 2020Q3

REPORT INFORMATION
  Report Type: Spontaneous
  Country: SE (occurrence: SE)
  Receive Date: 20200917
  Receipt Date: 20200917
  Transmission Date: 20201103
  Serious: Yes (Hospitalization)
  Sender: FDA-Public Use
  Company Number: SE-TEVA-2020-SE-1828788

PATIENT
  Sex: Female

DRUGS (1)
  1. BUPRENORPHINE TEVA [Suspect]
     Active Substance: BUPRENORPHINE
     Indication: DEHYDRATION
     Dosage: PROLONGED?RELEASE TRANSDERMAL PATCH
     Route: 062

REACTIONS (9)
  - Condition aggravated [Recovering/Resolving]
  - Product prescribing error [Unknown]
  - Eye swelling [Unknown]
  - Speech disorder [Recovering/Resolving]
  - Incorrect dose administered [Unknown]
  - Ocular hyperaemia [Unknown]
  - Feeding disorder [Recovering/Resolving]
  - Disturbance in attention [Recovering/Resolving]
  - Unresponsive to stimuli [Recovering/Resolving]
